FAERS Safety Report 5059019-2 (Version None)
Quarter: 2006Q3

REPORT INFORMATION
  Report Type: 
  Country: None (occurrence: None)
  Receive Date: 20060719
  Receipt Date: 20060710
  Transmission Date: 20061208
  Serious: Yes (Hospitalization)
  Sender: FDA-Public Use
  Company Number: TPA2006A01029

PATIENT
  Age: 66 Year
  Sex: Male
  Weight: 107.7 kg

DRUGS (4)
  1. PIOGLITAZONE HCL [Suspect]
     Indication: GLUCOSE TOLERANCE IMPAIRED
     Dosage: 1 IN 1 D, PER ORAL
     Route: 048
     Dates: start: 20040416
  2. GEMFIBROZIL (GEMFIBROZIL) (600 MILLIGRAM, TABLETS) [Concomitant]
  3. METOPROLOL TARTRATE (METOPROLOL TARTRATE) (50 MILLIGRAM, TABLETS) [Concomitant]
  4. SIMVASTATIN (SIMVASTATIN) (80, TABLETS) [Concomitant]

REACTIONS (2)
  - BLADDER CANCER [None]
  - PROSTATE CANCER [None]
